FAERS Safety Report 5411857-X (Version None)
Quarter: 2007Q3

REPORT INFORMATION
  Report Type: 
  Country: None (occurrence: None)
  Receive Date: 20070713
  Receipt Date: 20070322
  Transmission Date: 20080115
  Serious: No
  Sender: FDA-Public Use
  Company Number: 2007SP001039

PATIENT
  Age: 55 Year
  Sex: Male
  Weight: 66.2252 kg

DRUGS (5)
  1. LUNESTA [Suspect]
     Indication: INSOMNIA
     Dosage: 2 MG;PRN;ORAL    3 MG;PRN;ORAL
     Route: 048
     Dates: start: 20060601, end: 20070101
  2. LUNESTA [Suspect]
     Indication: INSOMNIA
     Dosage: 2 MG;PRN;ORAL    3 MG;PRN;ORAL
     Route: 048
     Dates: start: 20070101
  3. DIGOXIN [Concomitant]
  4. ATORVASTATIN CALCIUM [Concomitant]
  5. SLEEP AID [Concomitant]

REACTIONS (2)
  - DRUG EFFECT DECREASED [None]
  - MIDDLE INSOMNIA [None]
